FAERS Safety Report 20111537 (Version 1)
Quarter: 2021Q4

REPORT INFORMATION
  Report Type: Spontaneous
  Country: US (occurrence: US)
  Receive Date: 20211125
  Receipt Date: 20211125
  Transmission Date: 20220303
  Serious: No
  Sender: FDA-Public Use
  Company Number: US-JNJFOC-20211136462

PATIENT
  Sex: Female
  Weight: 83.990 kg

DRUGS (1)
  1. SPRAVATO [Suspect]
     Active Substance: ESKETAMINE
     Indication: Product used for unknown indication
     Route: 065

REACTIONS (3)
  - Pharyngeal hypoaesthesia [Recovered/Resolved]
  - Off label use [Unknown]
  - Product use issue [Unknown]
